FAERS Safety Report 11986516 (Version 5)
Quarter: 2016Q1

REPORT INFORMATION
  Report Type: Report from Study
  Country: CA (occurrence: CA)
  Receive Date: 20160202
  Receipt Date: 20160229
  Transmission Date: 20160526
  Serious: Yes (Other)
  Sender: FDA-Public Use
  Company Number: CA-ROCHE-1536933

PATIENT
  Age: 63 Year
  Sex: Male

DRUGS (14)
  1. ENBREL [Concomitant]
     Active Substance: ETANERCEPT
  2. COVERSYL [Concomitant]
     Active Substance: PERINDOPRIL
  3. SOLU-MEDROL [Concomitant]
     Active Substance: METHYLPREDNISOLONE SODIUM SUCCINATE
     Indication: PREMEDICATION
     Route: 042
     Dates: start: 20150210
  4. RITUXAN [Suspect]
     Active Substance: RITUXIMAB
     Indication: RHEUMATOID ARTHRITIS
     Route: 042
     Dates: start: 20150210, end: 20150827
  5. ACETAMINOPHEN. [Concomitant]
     Active Substance: ACETAMINOPHEN
     Indication: PREMEDICATION
     Route: 048
     Dates: start: 20150210
  6. ACTEMRA [Suspect]
     Active Substance: TOCILIZUMAB
     Indication: RHEUMATOID ARTHRITIS
     Dosage: DATE OF MOST RECENT DOSE: 21/JAN/2016
     Route: 058
     Dates: start: 20151015
  7. NAPROXEN. [Concomitant]
     Active Substance: NAPROXEN
  8. EZETROL [Concomitant]
     Active Substance: EZETIMIBE
  9. TYLENOL ARTHRITIS PAIN [Concomitant]
     Active Substance: ACETAMINOPHEN
     Indication: ARTHRITIS
     Dosage: AS REQUIRED
     Route: 065
  10. BENADRYL [Concomitant]
     Active Substance: DIPHENHYDRAMINE HYDROCHLORIDE
     Indication: PREMEDICATION
     Route: 048
     Dates: start: 20150210
  11. HUMALOG [Concomitant]
     Active Substance: INSULIN LISPRO
     Route: 065
  12. AVAMYS [Concomitant]
     Active Substance: FLUTICASONE FUROATE
     Indication: HYPERSENSITIVITY
  13. CRESTOR [Concomitant]
     Active Substance: ROSUVASTATIN CALCIUM
  14. ARAVA [Concomitant]
     Active Substance: LEFLUNOMIDE

REACTIONS (6)
  - Rash [Not Recovered/Not Resolved]
  - Heart rate increased [Unknown]
  - Infusion related reaction [Unknown]
  - Depression [Not Recovered/Not Resolved]
  - Infusion related reaction [Recovered/Resolved]
  - Oxygen saturation decreased [Unknown]

NARRATIVE: CASE EVENT DATE: 20150210
